FAERS Safety Report 22254125 (Version 1)
Quarter: 2023Q2

REPORT INFORMATION
  Report Type: Spontaneous
  Country: US (occurrence: US)
  Receive Date: 20230426
  Receipt Date: 20230426
  Transmission Date: 20230722
  Serious: No
  Sender: FDA-Public Use
  Company Number: US-SA-SAC20230424001056

PATIENT
  Sex: Male
  Weight: 49.89 kg

DRUGS (12)
  1. DUPIXENT [Suspect]
     Active Substance: DUPILUMAB
     Indication: Dermatitis atopic
     Dosage: 200 MG, QOW
     Route: 058
     Dates: start: 202204
  2. FLUOCINOLONE ACETONIDE [Concomitant]
     Active Substance: FLUOCINOLONE ACETONIDE
     Dosage: UNK
  3. PIMECROLIMUS [Concomitant]
     Active Substance: PIMECROLIMUS
     Dosage: UNK
  4. TRIAMCINOLONE ACETONIDE [Concomitant]
     Active Substance: TRIAMCINOLONE ACETONIDE
     Dosage: UNK
  5. THERA ZINC ELDERBERRY [Concomitant]
  6. VITAMIN D NOS [Concomitant]
     Active Substance: VITAMIN D NOS
     Dosage: UNK
  7. ZYRTEC [Concomitant]
     Active Substance: CETIRIZINE HYDROCHLORIDE
     Dosage: UNK
  8. CLARITIN [Concomitant]
     Active Substance: LORATADINE
  9. VITAMINS NOS [Concomitant]
     Active Substance: VITAMINS
     Dosage: UNK
  10. AIRBORNE [Concomitant]
     Active Substance: HERBALS\MINERALS\VITAMINS
     Dosage: UNK
  11. VITAMIN C [Concomitant]
     Active Substance: ASCORBIC ACID
     Dosage: UNK
  12. BLACK CUMIN [NIGELLA SATIVA SEED OIL] [Concomitant]
     Dosage: UNK

REACTIONS (2)
  - Chapped lips [Unknown]
  - Dermatitis atopic [Unknown]
